FAERS Safety Report 11374419 (Version 2)
Quarter: 2015Q3

REPORT INFORMATION
  Report Type: Report from Study
  Country: NL (occurrence: NL)
  Receive Date: 20150813
  Receipt Date: 20150904
  Transmission Date: 20151125
  Serious: Yes (Hospitalization, Other)
  Sender: FDA-Public Use
  Company Number: NL-AMGEN-NLDSL2015080743

PATIENT
  Age: 38 Year
  Sex: Female

DRUGS (2)
  1. ARANESP [Suspect]
     Active Substance: DARBEPOETIN ALFA
     Indication: ANAEMIA
     Dosage: 500 MUG/ML, Q3WK
     Route: 058
  2. DEXAMETHASON                       /00016001/ [Concomitant]
     Active Substance: DEXAMETHASONE
     Dosage: 1 MG, UNK

REACTIONS (6)
  - Palliative care [Unknown]
  - Hospice care [Unknown]
  - Facial paresis [Unknown]
  - Nausea [Unknown]
  - Hemiparesis [Unknown]
  - Headache [Unknown]

NARRATIVE: CASE EVENT DATE: 20150821
